FAERS Safety Report 7842429-5 (Version None)
Quarter: 2011Q4

REPORT INFORMATION
  Report Type: 
  Country: None (occurrence: None)
  Receive Date: 20111025
  Receipt Date: 20111013
  Transmission Date: 20120403
  Serious: Yes (Other)
  Sender: FDA-Public Use
  Company Number: PHHY2010US65940

PATIENT
  Sex: Male

DRUGS (4)
  1. SODIUM BICARBONATE [Concomitant]
  2. ARANESP [Concomitant]
  3. SIMVASTATIN [Concomitant]
  4. GLEEVEC [Suspect]
     Dosage: 400 MG, DAILY

REACTIONS (2)
  - INTERCAPILLARY GLOMERULOSCLEROSIS [None]
  - ANAEMIA [None]
